FAERS Safety Report 17199949 (Version 1)
Quarter: 2019Q4

REPORT INFORMATION
  Report Type: Spontaneous
  Country: US (occurrence: US)
  Receive Date: 20191226
  Receipt Date: 20191226
  Transmission Date: 20200122
  Serious: No
  Sender: FDA-Public Use
  Company Number: US-AMGEN-USASP2019212777

PATIENT
  Age: 70 Year
  Sex: Female

DRUGS (12)
  1. REPATHA [Suspect]
     Active Substance: EVOLOCUMAB
     Indication: ARTERIOSCLEROSIS
  2. MAGNESIUM [Concomitant]
     Active Substance: MAGNESIUM
  3. VITAMIN C [Concomitant]
     Active Substance: ASCORBIC ACID
  4. VITAMINS NOS [Concomitant]
     Active Substance: VITAMINS
  5. VITAMIN D3 [Concomitant]
     Active Substance: CHOLECALCIFEROL
  6. VITAMIN B12 [Concomitant]
     Active Substance: CYANOCOBALAMIN
  7. REPATHA [Suspect]
     Active Substance: EVOLOCUMAB
     Indication: HYPERLIPIDAEMIA
     Dosage: 140 MILLIGRAM, Q2WK
     Route: 058
     Dates: start: 20190911
  8. PROBIOTICS NOS [Concomitant]
     Active Substance: PROBIOTICS NOS
  9. CALCIUM [Concomitant]
     Active Substance: CALCIUM
  10. NIACIN. [Concomitant]
     Active Substance: NIACIN
  11. VITAMIN K2 [MENAQUINONE] [Concomitant]
  12. MELATONIN [Concomitant]
     Active Substance: MELATONIN

REACTIONS (1)
  - Product dose omission [Not Recovered/Not Resolved]
